FAERS Safety Report 19419263 (Version 11)
Quarter: 2022Q1

REPORT INFORMATION
  Report Type: Report from Study
  Country: CN (occurrence: CN)
  Receive Date: 20210615
  Receipt Date: 20220329
  Transmission Date: 20220423
  Serious: Yes (Hospitalization)
  Sender: FDA-Public Use
  Company Number: CN-PFIZER INC-2021666391

PATIENT
  Age: 74 Year
  Sex: Male
  Weight: 79 kg

DRUGS (7)
  1. TALAZOPARIB [Suspect]
     Active Substance: TALAZOPARIB
     Indication: Prostate cancer metastatic
     Dosage: UNK, 1X/DAY (QD)
     Route: 048
     Dates: start: 20200702, end: 20201119
  2. TALAZOPARIB [Suspect]
     Active Substance: TALAZOPARIB
     Dosage: UNK, 1X/DAY (QD)
     Route: 048
     Dates: start: 20201212, end: 20211003
  3. ENZALUTAMIDE [Suspect]
     Active Substance: ENZALUTAMIDE
     Indication: Prostate cancer metastatic
     Dosage: 160 MG, 1X/DAY (QD)
     Route: 048
     Dates: start: 20200702, end: 20211003
  4. GOSERELIN ACETATE [Concomitant]
     Active Substance: GOSERELIN ACETATE
     Indication: Prostate cancer
     Dosage: 10.8 MG, EVERY 3 MONTHS (Q3M) SUSTAINED RELEASE
     Route: 058
     Dates: start: 20200609
  5. ETORICOXIB [Concomitant]
     Active Substance: ETORICOXIB
     Indication: Arthralgia
     Dosage: 1 TABLET, AS NEEDED (PRN)
     Route: 048
     Dates: start: 20210330
  6. ETORICOXIB [Concomitant]
     Active Substance: ETORICOXIB
     Indication: Pain in extremity
  7. ETOPOSIDE [Concomitant]
     Active Substance: ETOPOSIDE
     Indication: Prostate cancer
     Dosage: 1000 MG, MONTHLY
     Route: 042
     Dates: start: 20210110, end: 20220112

REACTIONS (1)
  - Gastritis [Recovering/Resolving]

NARRATIVE: CASE EVENT DATE: 20210501
